FAERS Safety Report 7538908-0 (Version None)
Quarter: 2011Q2

REPORT INFORMATION
  Report Type: 
  Country: None (occurrence: None)
  Receive Date: 20110610
  Receipt Date: 20110527
  Transmission Date: 20111010
  Serious: Yes (Hospitalization)
  Sender: FDA-Public Use
  Company Number: CA-JNJFOC-20100804040

PATIENT
  Sex: Female
  Weight: 61 kg

DRUGS (2)
  1. BENADRYL [Concomitant]
     Dosage: PO/IV
  2. REMICADE [Suspect]
     Indication: RHEUMATOID ARTHRITIS
     Route: 042
     Dates: start: 20050201

REACTIONS (1)
  - ANKLE OPERATION [None]
